FAERS Safety Report 17597338 (Version 2)
Quarter: 2020Q3

REPORT INFORMATION
  Report Type: Spontaneous
  Country: US (occurrence: US)
  Receive Date: 20200330
  Receipt Date: 20200810
  Transmission Date: 20201102
  Serious: No
  Sender: FDA-Public Use
  Company Number: US-HTU-2020US020336

PATIENT
  Age: 47 Year
  Sex: Female

DRUGS (1)
  1. VALCHLOR [Suspect]
     Active Substance: MECHLORETHAMINE
     Indication: CUTANEOUS T-CELL LYMPHOMA
     Dosage: THIN FILM, SINGLE
     Route: 061
     Dates: start: 2019

REACTIONS (2)
  - Accidental exposure to product [Recovered/Resolved]
  - Exposure via mucosa [Recovered/Resolved]

NARRATIVE: CASE EVENT DATE: 20200223
